FAERS Safety Report 8300403-9 (Version None)
Quarter: 2012Q2

REPORT INFORMATION
  Report Type: 
  Country: None (occurrence: None)
  Receive Date: 20120420
  Receipt Date: 20120413
  Transmission Date: 20120825
  Serious: Yes (Hospitalization)
  Sender: FDA-Public Use
  Company Number: AU-UCBSA-055345

PATIENT
  Sex: Male

DRUGS (2)
  1. 3 UNKNOWN ANTIEPILEPTIC DRUGS [Concomitant]
     Indication: EPILEPSY
  2. VIMPAT [Suspect]
     Indication: EPILEPSY
     Route: 048
     Dates: end: 20120101

REACTIONS (2)
  - CONDITION AGGRAVATED [None]
  - CONVULSION [None]
